FAERS Safety Report 9579885 (Version 1)
Quarter: 2013Q3

REPORT INFORMATION
  Report Type: Spontaneous
  Country: US (occurrence: None)
  Receive Date: 20130930
  Receipt Date: 20130930
  Transmission Date: 20140515
  Serious: Yes (Other)
  Sender: FDA-Public Use
  Company Number: None

PATIENT
  Age: 45 Year
  Sex: Male
  Weight: 97.52 kg

DRUGS (5)
  1. NEXIUM [Suspect]
     Indication: GASTROOESOPHAGEAL REFLUX DISEASE
     Dosage: 1 PILL
     Route: 048
     Dates: start: 201102
  2. LISINIPRIL 5MG [Concomitant]
  3. ALLOPURINOL [Concomitant]
  4. SACCHAROMYCES BOULARDII [Concomitant]
  5. PLUS MOS (PROBIOTIC) [Concomitant]

REACTIONS (3)
  - Abdominal pain upper [None]
  - Pyrexia [None]
  - Clostridium difficile colitis [None]
